FAERS Safety Report 18399877 (Version 1)
Quarter: 2020Q4

REPORT INFORMATION
  Report Type: Spontaneous
  Country: US (occurrence: US)
  Receive Date: 20201019
  Receipt Date: 20201019
  Transmission Date: 20210114
  Serious: No
  Sender: FDA-Public Use
  Company Number: US-ALLERGAN-2027391US

PATIENT

DRUGS (1)
  1. VRAYLAR [Suspect]
     Active Substance: CARIPRAZINE
     Indication: PRODUCT USED FOR UNKNOWN INDICATION

REACTIONS (5)
  - Paranoia [Recovering/Resolving]
  - Fear [Not Recovered/Not Resolved]
  - Patient dissatisfaction with treatment [Unknown]
  - Derealisation [Unknown]
  - Panic attack [Recovering/Resolving]
